FAERS Safety Report 5245007-X (Version None)
Quarter: 2007Q1

REPORT INFORMATION
  Report Type: 
  Country: None (occurrence: None)
  Receive Date: 20070223
  Receipt Date: 20070219
  Transmission Date: 20070707
  Serious: Yes (Death)
  Sender: FDA-Public Use
  Company Number: PHBS2007BE03160

PATIENT
  Age: 88 Year
  Sex: Female

DRUGS (9)
  1. ZOCOR [Concomitant]
  2. GLURENORM [Concomitant]
  3. GLUCOPHAGE [Concomitant]
  4. LORAMET [Concomitant]
  5. ZESTRIL [Concomitant]
  6. METOPROLOL SUCCINATE [Concomitant]
     Dosage: 2 MG, UNK
  7. VASEXTEN [Concomitant]
  8. MINITRAN [Concomitant]
     Dosage: 15 MG, UNK
  9. VALSARTAN AND HYDROCHLOROTHIAZIDE [Suspect]
     Indication: HYPERTENSION
     Dosage: VALS 160 / HCT 25 MG/DAY
     Route: 048
     Dates: start: 20060101

REACTIONS (1)
  - SUDDEN DEATH [None]
